FAERS Safety Report 4930710-9 (Version None)
Quarter: 2006Q1

REPORT INFORMATION
  Report Type: 
  Country: None (occurrence: None)
  Receive Date: 20060227
  Receipt Date: 20060213
  Transmission Date: 20060701
  Serious: Yes (Other)
  Sender: FDA-Public Use
  Company Number: 2006022626

PATIENT
  Age: 69 Year
  Sex: Female
  Weight: 95.2554 kg

DRUGS (4)
  1. AROMASIN [Suspect]
     Indication: BREAST CANCER
     Dosage: 25 MG (25 MG, 1 D), ORAL
     Route: 048
     Dates: start: 20050101
  2. LYRICA [Suspect]
     Indication: NEUROPATHY
  3. DIAZIDE (GLICLAZIDE) [Concomitant]
  4. EFEFXOR-XR (VENLAFAXINE HYDROCHLORIDE) [Concomitant]

REACTIONS (3)
  - DYSPNOEA [None]
  - GLUCOSE TOLERANCE IMPAIRED [None]
  - MACULAR DEGENERATION [None]
